FAERS Safety Report 5156894-8 (Version None)
Quarter: 2006Q4

REPORT INFORMATION
  Report Type: 
  Country: None (occurrence: None)
  Receive Date: 20060918
  Receipt Date: 20060626
  Transmission Date: 20070319
  Serious: Yes (Hospitalization)
  Sender: FDA-Public Use
  Company Number: US-JNJFOC-20060605375

PATIENT
  Age: 25 Year
  Sex: Female

DRUGS (1)
  1. TOPAMAX [Suspect]
     Indication: BIPOLAR DISORDER
     Dosage: 125 MG, 1 IN 1 DAY, ORAL
     Route: 048
     Dates: start: 20030101

REACTIONS (1)
  - NEPHROLITHIASIS [None]
